FAERS Safety Report 14204187 (Version 1)
Quarter: 2017Q4

REPORT INFORMATION
  Report Type: Spontaneous
  Country: US (occurrence: US)
  Receive Date: 20171120
  Receipt Date: 20171120
  Transmission Date: 20180321
  Serious: Yes (Other)
  Sender: FDA-Public Use
  Company Number: US-IPSEN BIOPHARMACEUTICALS, INC.-2017-14485

PATIENT
  Age: 71 Year
  Sex: Female

DRUGS (24)
  1. ASPIRIN. [Concomitant]
     Active Substance: ASPIRIN
  2. BUTANIDE [Concomitant]
  3. LEXAPRO [Concomitant]
     Active Substance: ESCITALOPRAM OXALATE
  4. LOMOTIL [Concomitant]
     Active Substance: ATROPINE SULFATE\DIPHENOXYLATE HYDROCHLORIDE
  5. LISINOPRIL. [Concomitant]
     Active Substance: LISINOPRIL
  6. VITAMIN D2 [Concomitant]
     Active Substance: ERGOCALCIFEROL
  7. VITAMIN D3 [Concomitant]
     Active Substance: CHOLECALCIFEROL
  8. XERMELO [Suspect]
     Active Substance: TELOTRISTAT ETHYL
     Indication: CARCINOID SYNDROME
  9. EVISTA [Concomitant]
     Active Substance: RALOXIFENE HYDROCHLORIDE
  10. XERMELO [Suspect]
     Active Substance: TELOTRISTAT ETHYL
     Indication: METASTATIC CARCINOID TUMOUR
     Route: 048
     Dates: start: 20171010, end: 20171012
  11. CARVEDILOL. [Concomitant]
     Active Substance: CARVEDILOL
  12. SOMATULINE [Suspect]
     Active Substance: LANREOTIDE ACETATE
     Indication: PRODUCT USED FOR UNKNOWN INDICATION
     Dosage: NOT REPORTED
     Route: 065
  13. WELCHOL [Concomitant]
     Active Substance: COLESEVELAM HYDROCHLORIDE
  14. XERMELO [Suspect]
     Active Substance: TELOTRISTAT ETHYL
     Indication: CARCINOID TUMOUR OF THE SMALL BOWEL
     Route: 048
     Dates: start: 20170929, end: 20171010
  15. LANSOPRAZOLE. [Concomitant]
     Active Substance: LANSOPRAZOLE
  16. REQUIP [Concomitant]
     Active Substance: ROPINIROLE HYDROCHLORIDE
  17. VIGRAN [Concomitant]
     Active Substance: VITAMINS
  18. SIMETHICONE (DIMETHICONE) [Concomitant]
     Active Substance: DIMETHICONE
  19. CALCITRIOL. [Concomitant]
     Active Substance: CALCITRIOL
  20. CITRALAC [Concomitant]
  21. POTASSIUM CHLORIDE. [Concomitant]
     Active Substance: POTASSIUM CHLORIDE
  22. ZOFRAN [Concomitant]
     Active Substance: ONDANSETRON HYDROCHLORIDE
  23. OCTREOTIDE. [Concomitant]
     Active Substance: OCTREOTIDE
  24. FAMOTIDINE. [Concomitant]
     Active Substance: FAMOTIDINE

REACTIONS (6)
  - Dyspnoea [Unknown]
  - Restless legs syndrome [Unknown]
  - Syncope [Unknown]
  - Oedema peripheral [Unknown]
  - Pain in extremity [Unknown]
  - Fluid retention [Not Recovered/Not Resolved]

NARRATIVE: CASE EVENT DATE: 2017
